FAERS Safety Report 9102328 (Version 1)
Quarter: 2013Q1

REPORT INFORMATION
  Report Type: Spontaneous
  Country: US (occurrence: US)
  Receive Date: 20130219
  Receipt Date: 20130219
  Transmission Date: 20140127
  Serious: Yes (Other)
  Sender: FDA-Public Use
  Company Number: US-JNJFOC-20130204211

PATIENT
  Sex: Female
  Weight: 63.5 kg

DRUGS (3)
  1. DOXORUBICIN HYDROCHLORIDE (DOXIL) [Suspect]
     Indication: OVARIAN CANCER
     Route: 042
     Dates: start: 201105
  2. HEART MEDICATION (UNKNOWN) [Concomitant]
     Indication: CARDIAC DISORDER
     Route: 065
  3. AMLOPIN [Concomitant]
     Indication: BLOOD PRESSURE
     Route: 065

REACTIONS (1)
  - Glaucoma [Not Recovered/Not Resolved]
